FAERS Safety Report 25908906 (Version 1)
Quarter: 2025Q4

REPORT INFORMATION
  Report Type: 
  Country: CN (occurrence: CN)
  Receive Date: 20251011
  Receipt Date: 20251011
  Transmission Date: 20260118
  Serious: Yes (Hospitalization, Other)
  Sender: JIANGSU HANSOH PHARMACEUTICAL GROUP CO., LTD.
  Company Number: CN-Hansoh-20252190018455

PATIENT
  Age: 56 Year
  Sex: Male
  Weight: 70 kg

DRUGS (2)
  1. PEMETREXED DISODIUM [Suspect]
     Active Substance: PEMETREXED DISODIUM
     Indication: Lung neoplasm malignant
     Dosage: 0.8 G, QD
     Route: 041
     Dates: start: 20250923, end: 20250923
  2. CISPLATIN [Suspect]
     Active Substance: CISPLATIN
     Indication: Lung neoplasm malignant
     Dosage: 1.2 MG, QD
     Route: 041
     Dates: start: 20250923, end: 20250923

REACTIONS (10)
  - Anaphylactic shock [Recovered/Resolved]
  - Drug hypersensitivity [Recovered/Resolved]
  - Throat tightness [Recovered/Resolved]
  - Throat irritation [Recovered/Resolved]
  - Dyspnoea [Recovered/Resolved]
  - Hypoaesthesia oral [Recovered/Resolved]
  - Cold sweat [Recovered/Resolved]
  - Anal incontinence [Recovered/Resolved]
  - Erythema [Recovered/Resolved]
  - Blood pressure decreased [Recovered/Resolved]

NARRATIVE: CASE EVENT DATE: 20250923
